FAERS Safety Report 18367855 (Version 2)
Quarter: 2020Q4

REPORT INFORMATION
  Report Type: Spontaneous
  Country: FR (occurrence: FR)
  Receive Date: 20201009
  Receipt Date: 20201013
  Transmission Date: 20210114
  Serious: Yes (Hospitalization, Disabling)
  Sender: FDA-Public Use
  Company Number: FR-JNJFOC-20201000622

PATIENT
  Age: 44 Year
  Sex: Female
  Weight: 52 kg

DRUGS (12)
  1. SEVELAMER BASE [Concomitant]
     Indication: BLOOD PHOSPHORUS INCREASED
     Route: 048
     Dates: end: 20200830
  2. DEXAMETHASONE. [Concomitant]
     Active Substance: DEXAMETHASONE
     Indication: PLASMA CELL MYELOMA
     Dosage: ; CYCLICAL
     Route: 048
     Dates: start: 20200515, end: 20200825
  3. ATOVAQUONE. [Concomitant]
     Active Substance: ATOVAQUONE
     Indication: PROPHYLAXIS
     Route: 048
  4. DARZALEX [Suspect]
     Active Substance: DARATUMUMAB
     Indication: PLASMA CELL MYELOMA
     Dosage: ; CYCLICAL
     Route: 042
     Dates: start: 20200730, end: 20200825
  5. VELCADE [Suspect]
     Active Substance: BORTEZOMIB
     Indication: PLASMA CELL MYELOMA
     Dosage: ; CYCLICAL
     Route: 042
     Dates: start: 20200515, end: 20200825
  6. ORAVIR [Concomitant]
     Active Substance: FAMCICLOVIR
     Indication: HERPES SIMPLEX
     Route: 048
     Dates: start: 202006, end: 20200830
  7. KAYEXALATE [Concomitant]
     Active Substance: SODIUM POLYSTYRENE SULFONATE
     Indication: HYPERKALAEMIA
     Dosage: UNE CUILLER MESURE LES JOURS SANS DIALYSE
     Route: 048
     Dates: end: 20200830
  8. ZOPICLONE [Concomitant]
     Active Substance: ZOPICLONE
     Indication: INSOMNIA
     Dosage: ; AS REQUIRED
     Route: 048
     Dates: end: 20200830
  9. AMLODIPINE [Concomitant]
     Active Substance: AMLODIPINE BESYLATE
     Indication: HYPERTENSION
     Route: 048
     Dates: start: 20200830
  10. PRIMPERAN [Concomitant]
     Active Substance: METOCLOPRAMIDE HYDROCHLORIDE
     Indication: PROPHYLAXIS OF NAUSEA AND VOMITING
     Route: 065
     Dates: start: 20200830
  11. LANSOPRAZOL [Concomitant]
     Active Substance: LANSOPRAZOLE
     Indication: PROPHYLAXIS
     Route: 048
  12. CARBONATE DE CALCIUM [Concomitant]
     Active Substance: CALCIUM CARBONATE
     Indication: CALCIUM DEFICIENCY
     Route: 048
     Dates: end: 20200830

REACTIONS (1)
  - Neutropenic colitis [Recovered/Resolved with Sequelae]

NARRATIVE: CASE EVENT DATE: 20200830
